FAERS Safety Report 9382922 (Version 1)
Quarter: 2013Q3

REPORT INFORMATION
  Report Type: Report from Study
  Country: US (occurrence: US)
  Receive Date: 20130703
  Receipt Date: 20130703
  Transmission Date: 20140515
  Serious: Yes (Hospitalization, Other)
  Sender: FDA-Public Use
  Company Number: US-ABBOTT-13P-163-1112810-00

PATIENT
  Age: 64 Year
  Sex: Female
  Weight: 54.48 kg

DRUGS (3)
  1. HUMIRA [Suspect]
     Indication: RHEUMATOID ARTHRITIS
     Dates: start: 2009, end: 201205
  2. METHOTREXATE [Concomitant]
     Indication: PRODUCT USED FOR UNKNOWN INDICATION
     Dates: end: 201205
  3. UNKNOWN PAIN MEDICATION [Concomitant]
     Indication: PAIN

REACTIONS (2)
  - Grand mal convulsion [Recovered/Resolved]
  - Metastatic malignant melanoma [Not Recovered/Not Resolved]
